FAERS Safety Report 11242498 (Version 4)
Quarter: 2015Q3

REPORT INFORMATION
  Report Type: Spontaneous
  Country: JP (occurrence: None)
  Receive Date: 20150702
  Receipt Date: 20150803
  Transmission Date: 20151125
  Serious: Yes (Death, Hospitalization, Other)
  Sender: FDA-Public Use
  Company Number: ADR-2015-01219

PATIENT
  Age: 47 Year
  Sex: Male

DRUGS (1)
  1. GABALON INTRATHECAL 2000 MCG/ML [Suspect]
     Active Substance: BACLOFEN

REACTIONS (5)
  - Micturition frequency decreased [None]
  - Infrequent bowel movements [None]
  - Sudden death [None]
  - Cardiac arrest [None]
  - Dysphagia [None]
